FAERS Safety Report 4838345-3 (Version None)
Quarter: 2005Q4

REPORT INFORMATION
  Report Type: 
  Country: None (occurrence: None)
  Receive Date: 20051128
  Receipt Date: 20050615
  Transmission Date: 20060501
  Serious: Yes (Other)
  Sender: FDA-Public Use
  Company Number: PHEH2005US06818

PATIENT
  Age: 62 Year
  Sex: Female
  Weight: 46.258 kg

DRUGS (3)
  1. ZOMETA [Suspect]
     Indication: METASTASES TO BONE
     Dosage: 4 MG MONTHLY
     Dates: start: 20040301
  2. TAMOXIFEN [Concomitant]
  3. FEMARA [Concomitant]

REACTIONS (5)
  - BONE DENSITY INCREASED [None]
  - HYPOAESTHESIA [None]
  - OSTEONECROSIS [None]
  - PAIN IN JAW [None]
  - SWELLING [None]
